FAERS Safety Report 5269334-5 (Version None)
Quarter: 2007Q1

REPORT INFORMATION
  Report Type: 
  Country: None (occurrence: None)
  Receive Date: 20070319
  Receipt Date: 20070307
  Transmission Date: 20070707
  Serious: Yes (Hospitalization, Other)
  Sender: FDA-Public Use
  Company Number: US-PFIZER INC-2007018122

PATIENT
  Sex: Male
  Weight: 99.8 kg

DRUGS (2)
  1. CELEBREX [Suspect]
     Indication: INSOMNIA
  2. BEXTRA [Suspect]
     Indication: INSOMNIA

REACTIONS (2)
  - MYOCARDIAL INFARCTION [None]
  - OEDEMA PERIPHERAL [None]
